FAERS Safety Report 12728383 (Version 2)
Quarter: 2016Q4

REPORT INFORMATION
  Report Type: Spontaneous
  Country: DE (occurrence: DE)
  Receive Date: 20160909
  Receipt Date: 20161107
  Transmission Date: 20170207
  Serious: Yes (Life-Threatening, Hospitalization)
  Sender: FDA-Public Use
  Company Number: DE-BAYER-2016-173829

PATIENT
  Age: 47 Year
  Sex: Female
  Weight: 71 kg

DRUGS (6)
  1. ASS 100 [Concomitant]
     Active Substance: ASPIRIN
  2. CANDESARTAN [Concomitant]
     Active Substance: CANDESARTAN
     Dosage: 16 MG, UNK
     Dates: start: 2016
  3. MIRENA [Suspect]
     Active Substance: LEVONORGESTREL
     Indication: CONTRACEPTION
     Dosage: 20 MCG/24HR, CONT
     Route: 015
     Dates: start: 20141017, end: 20160823
  4. METOPROLOL. [Concomitant]
     Active Substance: METOPROLOL
  5. THYRONAJOD [Concomitant]
     Active Substance: LEVOTHYROXINE SODIUM\POTASSIUM IODIDE
  6. CANDESARTAN [Concomitant]
     Active Substance: CANDESARTAN
     Dosage: 8 MG, UNK
     Dates: start: 2016

REACTIONS (8)
  - Headache [Recovered/Resolved]
  - Photophobia [None]
  - Cerebral infarction [Recovered/Resolved]
  - Hemianopia [Recovered/Resolved]
  - Migraine [None]
  - Reversible cerebral vasoconstriction syndrome [None]
  - Phonophobia [None]
  - Hypertension [None]

NARRATIVE: CASE EVENT DATE: 20160714
